FAERS Safety Report 5107334-6 (Version None)
Quarter: 2006Q3

REPORT INFORMATION
  Report Type: 
  Country: None (occurrence: None)
  Receive Date: 20060914
  Receipt Date: 20060902
  Transmission Date: 20061208
  Serious: Yes (Hospitalization)
  Sender: FDA-Public Use
  Company Number: 2006PV020582

PATIENT
  Age: 64 Year
  Sex: Female
  Weight: 87.0906 kg

DRUGS (9)
  1. BYETTA [Suspect]
     Indication: DIABETES MELLITUS INSULIN-DEPENDENT
     Dosage: 10 MCG, BID; SC, 5 MCG, BID; SC
     Route: 058
     Dates: start: 20050101, end: 20050101
  2. BYETTA [Suspect]
     Indication: DIABETES MELLITUS INSULIN-DEPENDENT
     Dosage: 10 MCG, BID; SC, 5 MCG, BID; SC
     Route: 058
     Dates: start: 20050101
  3. LANTUS [Concomitant]
  4. QUINAPRIL [Concomitant]
  5. ACTOS [Concomitant]
  6. ZOCOR [Concomitant]
  7. OMACOR [Concomitant]
  8. COLACE [Concomitant]
  9. METAMUCIL [Concomitant]

REACTIONS (3)
  - ATRIAL FIBRILLATION [None]
  - BLOOD GLUCOSE INCREASED [None]
  - TACHYARRHYTHMIA [None]
